FAERS Safety Report 5475037-4 (Version None)
Quarter: 2007Q3

REPORT INFORMATION
  Report Type: 
  Country: None (occurrence: None)
  Receive Date: 20070831
  Receipt Date: 20070423
  Transmission Date: 20080115
  Serious: Yes (Hospitalization)
  Sender: FDA-Public Use
  Company Number: 261702

PATIENT
  Age: 49 Year
  Sex: Female
  Weight: 86.6 kg

DRUGS (1)
  1. NOVOLIN R [Suspect]
     Indication: DIABETES MELLITUS
     Dosage: 24 IU, QD, SUBCUTANEOUS; SLIDING SCALE SUBCUTANEOUS
     Route: 058
     Dates: start: 19970101

REACTIONS (2)
  - BLOOD GLUCOSE INCREASED [None]
  - INFLUENZA LIKE ILLNESS [None]
